FAERS Safety Report 20331025 (Version 8)
Quarter: 2023Q1

REPORT INFORMATION
  Report Type: Spontaneous
  Country: US (occurrence: US)
  Receive Date: 20220113
  Receipt Date: 20230207
  Transmission Date: 20230418
  Serious: Yes (Other)
  Sender: FDA-Public Use
  Company Number: US-PFIZER INC-2020009865

PATIENT
  Age: 65 Year
  Sex: Female

DRUGS (3)
  1. PREMARIN [Suspect]
     Active Substance: ESTROGENS, CONJUGATED
     Dosage: INSERT 0.5 APPLICATOR (S) FUL 3 TIMES A WEEK BY VAGINAL ROUTE AT BEDTIME FOR 90 DAYS
     Route: 067
  2. PREMARIN [Suspect]
     Active Substance: ESTROGENS, CONJUGATED
     Dosage: 1 GRAM VAGINALLY 3 TIMES A WEEK
     Route: 067
  3. PREMARIN [Suspect]
     Active Substance: ESTROGENS, CONJUGATED
     Dosage: 3 GM THREE TIMES A WEEK 90 DAYS
     Route: 067

REACTIONS (8)
  - Neoplasm malignant [Unknown]
  - Anxiety [Unknown]
  - Hypertension [Unknown]
  - Smear cervix abnormal [Unknown]
  - Product dispensing error [Unknown]
  - Off label use [Unknown]
  - Intentional product misuse [Unknown]
  - Prescribed overdose [Unknown]
